FAERS Safety Report 7875797-9 (Version None)
Quarter: 2011Q4

REPORT INFORMATION
  Report Type: 
  Country: None (occurrence: None)
  Receive Date: 20111031
  Receipt Date: 20111019
  Transmission Date: 20120403
  Serious: Yes (Hospitalization)
  Sender: FDA-Public Use
  Company Number: FR-NOVOPROD-337949

PATIENT

DRUGS (13)
  1. LEVOTHYROXINE SODIUM [Concomitant]
     Dosage: 25 A?G, QD
     Route: 048
  2. METEOSPASMYL                       /01017401/ [Suspect]
     Dosage: UNK
     Route: 048
     Dates: start: 20110601
  3. SPAGULAX [Suspect]
     Dosage: UNK
     Route: 048
     Dates: start: 20110601
  4. ESCITALOPRAM OXALATE [Concomitant]
     Dosage: 10 MG, QD
     Route: 048
  5. TRANSULOSE [Suspect]
  6. REVIA [Concomitant]
     Dosage: 50 MG, QD
     Route: 048
  7. KEPPRA [Concomitant]
     Dosage: 2.5 G, QD
     Route: 048
  8. LEVEMIR [Concomitant]
     Dosage: 25 UI AT MORNING
     Route: 058
  9. DEPAKOTE [Concomitant]
     Dosage: 2.5 G, QD
     Route: 048
  10. VIMPAT [Concomitant]
     Dosage: UNK UNK, BID
     Route: 048
  11. REPAGLINIDE [Suspect]
     Indication: DIABETES MELLITUS
     Dosage: 6 MG, QD
     Route: 058
     Dates: start: 20110601
  12. RISPERDAL [Concomitant]
     Dosage: 1 MG, QD
     Route: 048
  13. FENOFIBRATE [Concomitant]
     Dosage: 145 MG,QD
     Route: 048

REACTIONS (1)
  - PRURITUS [None]
